FAERS Safety Report 4988542-1 (Version None)
Quarter: 2006Q2

REPORT INFORMATION
  Report Type: 
  Country: None (occurrence: None)
  Receive Date: 20060502
  Receipt Date: 20060428
  Transmission Date: 20061013
  Serious: Yes (Hospitalization, Other)
  Sender: FDA-Public Use
  Company Number: US-GLAXOSMITHKLINE-A0603624A

PATIENT
  Age: 77 Year
  Sex: Female
  Weight: 62.3 kg

DRUGS (2)
  1. ARIXTRA [Suspect]
     Indication: HEPARIN-INDUCED THROMBOCYTOPENIA
     Dosage: 5MG PER DAY
     Route: 058
     Dates: start: 20050423, end: 20050425
  2. COUMADIN [Concomitant]

REACTIONS (3)
  - HAEMOGLOBIN DECREASED [None]
  - HAEMORRHAGE [None]
  - RENAL FAILURE [None]
